FAERS Safety Report 22255013 (Version 1)
Quarter: 2023Q2

REPORT INFORMATION
  Report Type: Spontaneous
  Country: US (occurrence: US)
  Receive Date: 20230426
  Receipt Date: 20230426
  Transmission Date: 20230722
  Serious: No
  Sender: FDA-Public Use
  Company Number: US-PFIZER INC-202300165639

PATIENT
  Sex: Female

DRUGS (2)
  1. PAXLOVID [Suspect]
     Active Substance: NIRMATRELVIR\RITONAVIR
     Indication: COVID-19 treatment
     Dosage: 300MG TABLET THREE IN THE MORNING AND THREE IN THE EVENING
  2. CARBIDOPA [Concomitant]
     Active Substance: CARBIDOPA
     Dosage: UNK

REACTIONS (1)
  - Product prescribing error [Unknown]
